FAERS Safety Report 5332946-4 (Version None)
Quarter: 2007Q2

REPORT INFORMATION
  Report Type: 
  Country: None (occurrence: None)
  Receive Date: 20070306
  Receipt Date: 20060801
  Transmission Date: 20071010
  Serious: Yes (Hospitalization)
  Sender: FDA-Public Use
  Company Number: A03200604862

PATIENT
  Age: 81 Year
  Sex: Male
  Weight: 63.49 kg

DRUGS (6)
  1. PLAVIX [Suspect]
     Indication: CARDIAC DISORDER
     Dosage: 75 MG QD - ORAL
     Route: 048
     Dates: start: 20040101, end: 20060101
  2. ACETYLSALICYLIC ACID SRT [Concomitant]
  3. DOXAZOSIN MESYLATE [Concomitant]
  4. METOPROLOL TARTRATE [Concomitant]
  5. EZETIMIBE [Concomitant]
  6. DONEPEZIL HCL [Concomitant]

REACTIONS (1)
  - HAEMORRHAGE [None]
